FAERS Safety Report 24232609 (Version 1)
Quarter: 2024Q3

REPORT INFORMATION
  Report Type: Spontaneous
  Country: US (occurrence: None)
  Receive Date: 20240820
  Receipt Date: 20240820
  Transmission Date: 20241017
  Serious: Yes (Disabling)
  Sender: Public
  Company Number: None

PATIENT
  Age: 59 Year
  Sex: Female
  Weight: 78.75 kg

DRUGS (1)
  1. ATORVASTATIN [Suspect]
     Active Substance: ATORVASTATIN
     Indication: Blood cholesterol increased
     Dosage: 30 TABLETS AT BEDTIME ORAL?
     Route: 048
     Dates: start: 20240725, end: 20240820

REACTIONS (9)
  - Product dispensing error [None]
  - Incorrect dose administered [None]
  - Gastrointestinal disorder [None]
  - Headache [None]
  - Ocular hyperaemia [None]
  - Visual impairment [None]
  - Muscular weakness [None]
  - Syncope [None]
  - Contusion [None]

NARRATIVE: CASE EVENT DATE: 20240820
